FAERS Safety Report 5773348-6 (Version None)
Quarter: 2008Q2

REPORT INFORMATION
  Report Type: 
  Country: None (occurrence: None)
  Receive Date: 20080616
  Receipt Date: 20080611
  Transmission Date: 20081010
  Serious: Yes (Life-Threatening, Hospitalization, Other)
  Sender: FDA-Public Use
  Company Number: PHEH2008US00465

PATIENT
  Sex: Male

DRUGS (2)
  1. ZOMETA [Suspect]
     Indication: PROSTATE CANCER METASTATIC
     Dosage: UNK, QMO
     Dates: start: 20070101
  2. LIPITOR [Concomitant]
     Dates: start: 20070101

REACTIONS (7)
  - BLADDER NEOPLASM [None]
  - BLOOD CREATININE INCREASED [None]
  - METABOLIC ACIDOSIS [None]
  - MYALGIA [None]
  - OEDEMA [None]
  - RENAL FAILURE [None]
  - URETERIC OBSTRUCTION [None]
